FAERS Safety Report 9135777 (Version 1)
Quarter: 2013Q1

REPORT INFORMATION
  Report Type: Spontaneous
  Country: GB (occurrence: GB)
  Receive Date: 20130304
  Receipt Date: 20130304
  Transmission Date: 20140127
  Serious: Yes (Disabling)
  Sender: FDA-Public Use
  Company Number: PHHY2013GB019859

PATIENT
  Age: 39 Year
  Sex: Female
  Weight: 69.85 kg

DRUGS (3)
  1. CITALOPRAM [Suspect]
     Indication: DEPRESSION
     Dosage: 20 MG, QD
     Route: 048
     Dates: start: 20130131
  2. CITALOPRAM [Interacting]
     Dosage: 10 MG, QD
     Route: 048
     Dates: end: 20130210
  3. IBUPROFEN [Interacting]

REACTIONS (3)
  - Anaemia [Unknown]
  - Vaginal haemorrhage [Recovered/Resolved with Sequelae]
  - Drug interaction [Unknown]
